FAERS Safety Report 19483312 (Version 1)
Quarter: 2021Q3

REPORT INFORMATION
  Report Type: Report from Study
  Country: IE (occurrence: IE)
  Receive Date: 20210701
  Receipt Date: 20210701
  Transmission Date: 20211014
  Serious: Yes (Other)
  Sender: FDA-Public Use
  Company Number: IE-JNJFOC-20210700057

PATIENT
  Age: 66 Year
  Sex: Male

DRUGS (5)
  1. STELARA [Suspect]
     Active Substance: USTEKINUMAB
     Indication: PSORIASIS
     Route: 058
     Dates: start: 20200505
  2. BETMIGA [Concomitant]
     Active Substance: MIRABEGRON
  3. SERTRALINE [Concomitant]
     Active Substance: SERTRALINE HYDROCHLORIDE
  4. STELARA [Suspect]
     Active Substance: USTEKINUMAB
  5. DIFENE [Concomitant]
     Active Substance: DICLOFENAC SODIUM

REACTIONS (2)
  - Sinusitis [Recovered/Resolved]
  - Kidney infection [Recovered/Resolved]

NARRATIVE: CASE EVENT DATE: 2021
